FAERS Safety Report 9459062 (Version 2)
Quarter: 2013Q3

REPORT INFORMATION
  Report Type: Spontaneous
  Country: US (occurrence: US)
  Receive Date: 20130814
  Receipt Date: 20130904
  Transmission Date: 20140515
  Serious: Yes (Death, Hospitalization, Other)
  Sender: FDA-Public Use
  Company Number: US-PFIZER INC-2013232489

PATIENT
  Age: 87 Year
  Sex: Female

DRUGS (19)
  1. REVATIO [Suspect]
     Indication: PULMONARY HYPERTENSION
     Dosage: 20 MG, 3X/DAY
     Route: 048
     Dates: start: 20120215
  2. REVATIO [Suspect]
     Indication: PULMONARY ARTERIAL HYPERTENSION
     Dosage: UNK
     Route: 048
     Dates: end: 20130803
  3. COUMADINE [Suspect]
     Dosage: 4 MG, 1X/DAY (EVERY EVENING)
     Route: 048
  4. TYLENOL [Concomitant]
     Indication: PAIN
     Dosage: 650 MG, (325 MG TABLET, 2 TABS BY MOUTH EVERY 4 HOURS AS NEEDED)
     Route: 048
  5. XALATAN [Concomitant]
     Dosage: 1 GTT, INTO BOTH EYES AT BEDTIME
     Route: 047
  6. VENTOLINE [Concomitant]
     Dosage: 2.5 MG, 4X/DAY AS NEEDED
  7. PROVENTIL INHALER [Concomitant]
     Dosage: 2 PUFFS EVERY 6 HOURS AS NEEDED
  8. INULIN [Concomitant]
     Dosage: 2 G, 1X/DAY
     Route: 048
  9. LASIX [Concomitant]
     Dosage: 40 MG, 1X/DAY
     Route: 048
  10. K-DUR [Concomitant]
     Dosage: 20 MEQ, 2X/DAY
     Route: 048
  11. ZYRTEC [Concomitant]
     Dosage: 10 MG, 1X/DAY
  12. FISH OIL [Concomitant]
     Dosage: 1000 MG, 3X/DAY
     Route: 048
  13. OXYGEN [Concomitant]
     Dosage: UNK, USE AS DIRECTED
  14. ARAVA [Concomitant]
     Dosage: 20 MG, 1X/DAY
     Route: 048
  15. AZELASTINE [Concomitant]
     Dosage: 2 SPRAYS INTO EACH NOSTRIL 2 TIMES DAILY
     Route: 045
  16. ACETYLSALICYLIC ACID [Concomitant]
     Dosage: 1 DF, 1X/DAY
     Route: 048
  17. TRAVATAN [Concomitant]
     Dosage: 1 GTT, 1 DROP INTO BOTH EYES AT BEDTIME.
     Route: 047
  18. CALCIUM WITH VITAMIN D [Concomitant]
     Dosage: 2 DF, 1X/DAY
     Route: 048
  19. LUTEIN [Concomitant]
     Dosage: 6 MG, 1X/DAY
     Route: 048

REACTIONS (15)
  - Cardiac arrest [Fatal]
  - Gastrointestinal haemorrhage [Unknown]
  - Diverticulum intestinal haemorrhagic [Unknown]
  - Rectal haemorrhage [Unknown]
  - Confusional state [Unknown]
  - Renal failure acute [Unknown]
  - Pulmonary embolism [Unknown]
  - Deep vein thrombosis [Unknown]
  - Anaemia [Unknown]
  - Bradyarrhythmia [Unknown]
  - Contusion [Unknown]
  - Haematoma [Unknown]
  - Haemoglobin decreased [Unknown]
  - Hypotension [Unknown]
  - Hypovolaemia [Unknown]
